FAERS Safety Report 20150457 (Version 1)
Quarter: 2021Q4

REPORT INFORMATION
  Report Type: Spontaneous
  Country: CN (occurrence: CN)
  Receive Date: 20211206
  Receipt Date: 20211206
  Transmission Date: 20220303
  Serious: Yes (Hospitalization, Other)
  Sender: FDA-Public Use
  Company Number: CN-009507513-2112CHN000573

PATIENT
  Age: 44 Year
  Sex: Female
  Weight: 56 kg

DRUGS (6)
  1. CILASTATIN SODIUM\IMIPENEM [Suspect]
     Active Substance: CILASTATIN SODIUM\IMIPENEM
     Indication: Antibiotic therapy
     Dosage: 2 G, TID
     Route: 041
     Dates: start: 20210728, end: 20210806
  2. RITUXIMAB [Suspect]
     Active Substance: RITUXIMAB
     Indication: Neoplasm malignant
     Dosage: 500 MG, ONCE
     Route: 041
     Dates: start: 20210727, end: 20210727
  3. ZANUBRUTINIB [Suspect]
     Active Substance: ZANUBRUTINIB
     Indication: Neoplasm malignant
     Dosage: 160 MG, BID
     Route: 048
     Dates: start: 20210728, end: 20210828
  4. LENALIDOMIDE [Suspect]
     Active Substance: LENALIDOMIDE
     Indication: Neoplasm malignant
     Dosage: 25 MG, EVERY EVENING (QPM) (REPORTED AS QN)
     Route: 048
     Dates: start: 20210728, end: 20210826
  5. OMEPRAZOLE SODIUM [Concomitant]
     Active Substance: OMEPRAZOLE SODIUM
     Indication: Dyspepsia
     Dosage: 40 MG, QD
     Route: 041
     Dates: start: 20210806, end: 20210818
  6. REBAMIPIDE [Concomitant]
     Active Substance: REBAMIPIDE
     Indication: Abdominal discomfort
     Dosage: 0.1 G, TID
     Route: 048
     Dates: start: 20210727, end: 20210827

REACTIONS (3)
  - Hepatic enzyme increased [Recovering/Resolving]
  - Diffuse large B-cell lymphoma stage IV [Unknown]
  - Overdose [Unknown]

NARRATIVE: CASE EVENT DATE: 20210728
